FAERS Safety Report 9991601 (Version 2)
Quarter: 2014Q2

REPORT INFORMATION
  Report Type: Spontaneous
  Country: JP (occurrence: JP)
  Receive Date: 20140310
  Receipt Date: 20140403
  Transmission Date: 20141212
  Serious: Yes (Death)
  Sender: FDA-Public Use
  Company Number: JP-CUBIST PHARMACEUTICAL, INC.-2014CBST000370

PATIENT
  Sex: 0

DRUGS (4)
  1. CUBICIN [Suspect]
     Indication: STAPHYLOCOCCAL INFECTION
     Dosage: 6.8 MG/KG, ONCE DAILY
     Route: 041
     Dates: start: 20140208, end: 20140227
  2. CUBICIN [Suspect]
     Dosage: 240 MG, ONCE DAILY
     Route: 041
     Dates: start: 20140208, end: 20140227
  3. VANCOMYCIN [Suspect]
     Indication: STAPHYLOCOCCAL INFECTION
     Dosage: 1 G, QD
     Route: 041
     Dates: start: 20140203, end: 20140207
  4. MEROPEN                            /01250501/ [Suspect]
     Indication: PYREXIA
     Dosage: UNK, UNK
     Route: 041
     Dates: start: 20140203, end: 20140203

REACTIONS (3)
  - Death [Fatal]
  - Cardiac failure [Fatal]
  - Drug ineffective [Unknown]
